FAERS Safety Report 26003685 (Version 1)
Quarter: 2025Q4

REPORT INFORMATION
  Report Type: Spontaneous
  Country: BR (occurrence: BR)
  Receive Date: 20251106
  Receipt Date: 20251106
  Transmission Date: 20260117
  Serious: Yes (Other)
  Sender: CELLTRION
  Company Number: BR-CELLTRION INC.-2025BR037028

PATIENT

DRUGS (8)
  1. INFLIXIMAB [Suspect]
     Active Substance: INFLIXIMAB
     Indication: Crohn^s disease
     Dosage: 6 AMPOULES EVERY MONTH
     Route: 042
     Dates: start: 2022, end: 2024
  2. ENALAPRIL [Concomitant]
     Active Substance: ENALAPRIL
     Indication: Hypertension
     Dosage: 2 TABLETS A DAY
     Route: 065
     Dates: start: 2021
  3. BUPROPION [Concomitant]
     Active Substance: BUPROPION
     Indication: Depression
     Dosage: 1 TABLET 1 DAY
     Route: 065
     Dates: start: 2024
  4. QUETIAPINE [Concomitant]
     Active Substance: QUETIAPINE
     Indication: Depression
     Dosage: 1 TABLET A DAY
     Route: 065
     Dates: start: 2021
  5. QUETIAPINE [Concomitant]
     Active Substance: QUETIAPINE
     Indication: Anxiety
  6. QUETIAPINE [Concomitant]
     Active Substance: QUETIAPINE
     Indication: Insomnia
  7. LITHIUM [Concomitant]
     Active Substance: LITHIUM
     Indication: Depression
     Dosage: 2 TABLETS A DAY
     Route: 065
     Dates: start: 2024
  8. AMITRIPTYLINE [Concomitant]
     Active Substance: AMITRIPTYLINE
     Indication: Depression
     Dosage: 2 TABLETS A DAY
     Route: 065
     Dates: start: 202504

REACTIONS (8)
  - Crohn^s disease [Unknown]
  - Haematochezia [Unknown]
  - Liquid product physical issue [Unknown]
  - Product supply issue [Recovered/Resolved]
  - Product physical issue [Unknown]
  - Product dose omission issue [Recovered/Resolved]
  - Loss of therapeutic response [Unknown]
  - Intentional product use issue [Unknown]

NARRATIVE: CASE EVENT DATE: 20230101
